FAERS Safety Report 7937645-8 (Version None)
Quarter: 2011Q4

REPORT INFORMATION
  Report Type: 
  Country: None (occurrence: None)
  Receive Date: 20111123
  Receipt Date: 20111109
  Transmission Date: 20120403
  Serious: Yes (Hospitalization, Other)
  Sender: FDA-Public Use
  Company Number: PHHY2011FR30802

PATIENT
  Sex: Female
  Weight: 60 kg

DRUGS (151)
  1. STALEVO 100 [Suspect]
     Dosage: 5 DF, 5 TABLETS PER DAY
     Dates: start: 20090415
  2. STALEVO 100 [Suspect]
     Dosage: 5 DF, 5 TAB/DAY
     Dates: start: 20091102
  3. STALEVO 100 [Suspect]
     Dosage: 6 DF, PER DAY
     Dates: start: 20100302
  4. STALEVO 100 [Suspect]
     Dosage: 5 DF, (5 TABS PER DAY0
     Dates: start: 20090105
  5. MODOPAR [Suspect]
     Dosage: 125 MG, 1 TAB IN EVENING
     Dates: start: 20091102
  6. MODOPAR [Suspect]
     Dosage: UNK UKN, UNK
     Dates: start: 19950101
  7. MODOPAR [Suspect]
     Dosage: 125 MG  TWICE PER DAY, MODOPAR 62.5 MG AT 1 CAPSULE 4 TIMES PER DAY DAILY
     Dates: start: 20080206
  8. MODOPAR [Suspect]
     Dosage: 62.5 MG, QID
     Dates: start: 20080530
  9. MODOPAR [Suspect]
     Dosage: 125 MG, QD  MODOPAR 62.5 MG AT 5 TIMES PER DAY
     Dates: start: 20080915
  10. MODOPAR [Suspect]
     Dosage: 125 MG,ONE SCATTERED TAB PER DAY, 62.5 MG 3 TAB/DAY
     Dates: start: 20100302
  11. EFFEXOR [Concomitant]
     Dosage: 50 MG, UNK
     Dates: start: 20081029
  12. XANAX [Concomitant]
     Dosage: 0.5 MG, 5 TAB/DAY
     Dates: start: 20090406
  13. XANAX [Concomitant]
     Dosage: 0.5 MG, 5 TAB/DAY
     Dates: start: 20090725
  14. XANAX [Concomitant]
     Dosage: 0.5 MG, TID
     Dates: start: 20041104
  15. ACETAMINOPHEN AND TRAMADOL HCL [Concomitant]
     Dosage: 1 DF, TID
     Dates: start: 20060622
  16. IMOVANE [Concomitant]
     Dosage: 2 DF, QHS
     Dates: start: 20020219
  17. ATHYMIL [Concomitant]
     Dosage: 30 MG, UNK
     Dates: start: 20090917
  18. CEFUROXIME [Concomitant]
     Dosage: 250 MG, BID
  19. KETOCONAZOLE [Concomitant]
     Dosage: UNK UKN, UNK
     Dates: start: 20060918
  20. DEPAKOTE [Concomitant]
     Dosage: 250 MG, BID
     Dates: start: 20090512
  21. PRAZEPAM [Concomitant]
     Dosage: 10 MG, UNK
     Dates: start: 20090803
  22. COMTAN [Suspect]
     Indication: PARKINSON'S DISEASE
     Dosage: 1 DF, (1 TAB IN MORNING)
     Route: 048
     Dates: start: 20050123, end: 20050301
  23. STALEVO 100 [Suspect]
     Dosage: 5 DF, 5 TAB/DAY
     Dates: start: 20090818
  24. STALEVO 100 [Suspect]
     Dosage: 5 DF, 5 TAB/DAY
     Dates: start: 20091019
  25. MODOPAR [Suspect]
     Dosage: 250 MG  AT 1 CAPSULE 3 TIMES PER DAY
     Dates: start: 20071205
  26. MODOPAR [Suspect]
     Dosage: 125 MG, SCATTERED TAB IF NEEDED, 62.5 MG 5 TABS/D
     Dates: start: 20090818
  27. MODOPAR [Suspect]
     Dosage: 250 MG, TID, 62.5 MG 1 TABLET MID DAY
     Dates: start: 20020219
  28. MODOPAR [Suspect]
     Dosage: 250 MG, BID 62.5 MGG 1TAB/DAY
     Dates: start: 20020813
  29. MODOPAR [Suspect]
     Dosage: 250 MG, UNK
     Dates: start: 20030905
  30. MODOPAR [Suspect]
     Dosage: 250 MG, TID 62.5 MG 1 TAB/DAY
     Dates: start: 20041214
  31. MODOPAR [Suspect]
     Dosage: 62.5 MG, 5 TABS/DAY
     Dates: start: 20090216
  32. PERGOLIDE MESYLATE [Suspect]
     Dosage: UNK UKN, UNK
     Dates: start: 20030201
  33. PRAMIPEXOLE DIHYDROCHLORIDE [Suspect]
     Dosage: 0.7 MG, TID
     Dates: start: 20060622
  34. EFFEXOR [Concomitant]
     Dosage: 50 MG, QD
     Dates: start: 20080105
  35. EFFEXOR [Concomitant]
     Dosage: 75 MG, BID
     Dates: start: 20090917
  36. EFFEXOR [Concomitant]
     Dosage: 75 MG, BID
     Dates: start: 20091019
  37. EFFEXOR [Concomitant]
     Dosage: 50 MG, BID
     Dates: start: 20020222
  38. XANAX [Concomitant]
     Dosage: 0.5 MG, TID
     Dates: start: 20050331
  39. XANAX [Concomitant]
     Dosage: 0.25 MG,4 T/DAY
     Dates: start: 20040728
  40. ATHYMIL [Concomitant]
     Dosage: 50 MG, UNK
     Dates: start: 20090725
  41. IBUPROFEN [Concomitant]
     Dosage: 400 MG, UNK
  42. ELUDRIL [Concomitant]
     Dosage: UNK UKN, UNK
  43. LEVONORGESTREL AND ETHINYL ESTRADIOL [Concomitant]
     Dosage: UNK UKN, UNK
  44. COMTAN [Suspect]
     Dosage: 0.5 TABLET 5 TIMES PER DAY
     Route: 048
     Dates: start: 20060629
  45. MODOPAR [Suspect]
     Dosage: 125 MG, BID (1 IN THE MORNING, 1 IN THE EVENING)
     Dates: start: 20090302
  46. MODOPAR [Suspect]
     Dosage: 62.5 MG 5 TIMES PER DAY
     Dates: start: 20090505
  47. MODOPAR [Suspect]
     Dosage: 125 MG AT 1 TABLET 2 TO 3 TIMES PER DAY, MODOPAR 62.5 MG AT 1 TABLET 4 TIMES PER
     Route: 048
  48. MODOPAR [Suspect]
     Dosage: 125 MG, MODOPAR 62.5 MG
     Dates: start: 20081029
  49. MODOPAR [Suspect]
     Dosage: 250 MG, BID, 62.5 MG BID
     Dates: start: 20020322
  50. MODOPAR [Suspect]
     Dosage: 250 MG, TID 62.5 MG 1 TAB/DAY
     Dates: start: 20040901
  51. MODOPAR [Suspect]
     Dosage: 250 MG, TID
     Dates: start: 20041104
  52. PRAMIPEXOLE DIHYDROCHLORIDE [Suspect]
     Dosage: UNK
     Dates: start: 20060321
  53. EFFEXOR [Concomitant]
     Dosage: 75 MG, BID
     Dates: start: 20080625
  54. XANAX [Concomitant]
     Dosage: 0.5 MG, 5 TAB/DAY
     Dates: start: 20090602
  55. XANAX [Concomitant]
     Dosage: 0.5 MG, TID
     Dates: start: 20041214
  56. ACETAMINOPHEN AND TRAMADOL HCL [Concomitant]
     Dosage: 1 DF, QD
     Dates: start: 20080105
  57. IMOVANE [Concomitant]
     Dosage: 7.5 MG, QHS
  58. ATHYMIL [Concomitant]
     Dosage: 30 MG, UNK
     Dates: start: 20090602
  59. LOXAPINE HCL [Concomitant]
     Dosage: 15 DRP, TID
     Dates: start: 20080130
  60. ACETAMINOPHEN [Concomitant]
     Dosage: 500 MG, UNK
     Dates: start: 20090602
  61. LORAZEPAM [Concomitant]
     Dosage: 2.5 MG, UNK
     Dates: start: 20090209
  62. ATARAX [Concomitant]
     Dosage: 5 DF, UNK
     Dates: start: 20090406
  63. ATARAX [Concomitant]
     Dosage: 4 DF, UNK
     Dates: start: 20090602
  64. AMOXICILLIN TRIHYDRATE [Concomitant]
     Dosage: 1 G, BID
     Dates: start: 20041117
  65. STALEVO 100 [Suspect]
     Dosage: 5 DF, 5 TAB/DAY
     Dates: start: 20090725
  66. STALEVO 100 [Suspect]
     Dosage: 5 DF, (5 TABS PER DAY0
     Dates: start: 20080827
  67. MODOPAR [Suspect]
     Indication: PARKINSON'S DISEASE
     Dosage: 125 MG, QD
  68. MODOPAR [Suspect]
     Dosage: 125 MG,1/DAY PLUS 1 IF NEEDED, 62.5 MG, 5 TABS/DAY
     Dates: start: 20090406
  69. MODOPAR [Suspect]
     Dosage: 125 MG, 1 TAB PER DAY
     Dates: start: 20090725
  70. MODOPAR [Suspect]
     Dosage: 250 MG AT 1 CAPSULE 5 TIMES PER DAY
     Dates: start: 20070109
  71. MODOPAR [Suspect]
     Dosage: 250 MG, TID
     Dates: start: 20020219
  72. MODOPAR [Suspect]
     Dosage: 125 MG, QID
     Route: 048
     Dates: start: 20080625
  73. MODOPAR [Suspect]
     Dosage: 62.5 MG, 4 TABS/DAY
     Dates: start: 20080715
  74. EFFEXOR [Concomitant]
     Dosage: 50 MG, QD
     Dates: start: 20060622
  75. EFFEXOR [Concomitant]
     Dosage: 75 MG, UNK
     Dates: start: 20090602
  76. EFFEXOR [Concomitant]
     Dosage: 50 MG, BID
     Dates: start: 20040915
  77. XANAX [Concomitant]
     Dosage: 0.5 MG, QID
  78. XANAX [Concomitant]
     Dosage: 0.25 MG, TID
     Dates: start: 20080130
  79. IMOVANE [Concomitant]
     Dosage: 1 DF, BID
     Dates: start: 20020813
  80. ATHYMIL [Concomitant]
     Dosage: 30 MG, QD
     Dates: start: 20080130
  81. ATHYMIL [Concomitant]
     Dosage: 30 MG, UNK
     Dates: start: 20091112
  82. ATARAX [Concomitant]
     Dosage: 25 MG, TID
     Dates: start: 20080125
  83. DEPAKOTE [Concomitant]
     Dosage: 250 MG, (2 IN MORNING, 2 IN EVENING)
     Dates: start: 20090519
  84. COMTAN [Suspect]
     Dosage: 0.5 TABLET 3 TIMES PER DAY
     Route: 048
     Dates: start: 20071205
  85. STALEVO 100 [Suspect]
     Dosage: 5 DF,PER DAY
     Dates: start: 20091219
  86. STALEVO 100 [Suspect]
     Dosage: UNK UKN, UNK
     Dates: end: 20101101
  87. STALEVO 100 [Suspect]
     Dosage: 5 DF, (5 TABS PER DAY0
     Dates: start: 20081212
  88. STALEVO 100 [Suspect]
     Dosage: 5 DF, (5 TABS PER DAY0
     Dates: start: 20090216
  89. MODOPAR [Suspect]
     Dosage: 125 MG, 1 TAB PER DAY
     Dates: start: 20090818
  90. MODOPAR [Suspect]
     Dosage: 125 MG,  IN EVENING, 62.5 MG 5 TABS PER DAY
     Dates: start: 20091102
  91. MODOPAR [Suspect]
     Dosage: 62.5 MG, 5 TABS/DAY
     Dates: start: 20081115
  92. EFFEXOR [Concomitant]
     Dosage: 50 MG, BID
     Dates: start: 20080130
  93. EFFEXOR [Concomitant]
     Dosage: 50 MG, 5 TABS/ DAY
     Dates: start: 20080715
  94. XANAX [Concomitant]
     Dosage: 0.5 MG, TID
     Dates: start: 20040925
  95. IMOVANE [Concomitant]
     Dosage: 1 DF, BID
     Dates: start: 20020322
  96. IMOVANE [Concomitant]
     Dosage: 1 DF, UNK
     Dates: start: 20080715
  97. ATHYMIL [Concomitant]
     Dosage: 30 MG, UNK
     Dates: start: 20091219
  98. DEPAKOTE [Concomitant]
     Dosage: 500 MG, BID
     Dates: start: 20091019
  99. STILNOX                                 /FRA/ [Concomitant]
     Dosage: 1 DF, UNK
     Dates: start: 20040915
  100. COMTAN [Suspect]
     Dosage: 0.5 TABLET FIVE TIMES PER DAY
     Route: 048
     Dates: start: 20080105
  101. MODOPAR [Suspect]
     Dosage: 0.5 DF, FIVE TIME DAILY
     Dates: start: 20070830
  102. MODOPAR [Suspect]
     Dosage: 125 MG, 1 TAB IN EVENING
     Dates: start: 20090602
  103. MODOPAR [Suspect]
     Dosage: 125 MG, UNK
     Dates: start: 20100727
  104. MODOPAR [Suspect]
     Dosage: 250 MG  AT 1 CAPSULE 3 TIMES PER DAY, MODOPAR 125 MG AT 1 TABLET IN THE MORNING, MODOPAR 62.5
     Dates: start: 20070510
  105. MODOPAR [Suspect]
     Dosage: 62.5 MG, QID
     Dates: start: 20080304
  106. MODOPAR [Suspect]
     Dosage: UNK UKN, QID
     Route: 048
     Dates: start: 20080530
  107. MODOPAR [Suspect]
     Dosage: UNK DF, BIDSCATTERED TAB BID, MODOPAR 62.5, 5 TABS/DAY
     Dates: start: 20090725
  108. MODOPAR [Suspect]
     Dosage: 62.5 MG, 5 TABS/DAY
     Dates: start: 20090101
  109. EFFEXOR [Concomitant]
     Dosage: 50 MG, TID
     Dates: start: 20050331
  110. EFFEXOR [Concomitant]
     Dosage: 75 MG, TID
     Dates: start: 20090209
  111. XANAX [Concomitant]
     Dosage: 0.5 MG, 5 TAB/DAY
     Dates: start: 20091019
  112. XANAX [Concomitant]
     Dosage: 0.25 MG, HALF TABLET 5 TIMES A DAY
     Dates: start: 20080715
  113. ATHYMIL [Concomitant]
     Dosage: 10 MG, 5 TAB PER DAY
     Dates: start: 20090205
  114. NECYRANE [Concomitant]
     Dosage: UNK UKN, UNK
     Dates: start: 20060313
  115. CARBOCISTEINE [Concomitant]
     Dosage: UNK UKN, UNK
  116. ZOLOFT [Concomitant]
     Dosage: 50 MG, BID
     Dates: start: 20040915
  117. STALEVO 100 [Suspect]
     Indication: PARKINSON'S DISEASE
     Dosage: 1 DF, 1 TABLET 5 TIMES PER DAY
     Route: 048
  118. STALEVO 100 [Suspect]
     Dosage: 1 DF, QID
     Route: 048
     Dates: start: 20080304
  119. MODOPAR [Suspect]
     Dosage: 125 MG, UNK
     Dates: start: 20090430
  120. MODOPAR [Suspect]
     Dosage: 125 MG, 1 TO 3 TIMES PER DAY
     Route: 048
     Dates: start: 20080304
  121. MODOPAR [Suspect]
     Dosage: 125 MG  IN EVENING, 62.5 MG 5 TAB/DAY
     Dates: start: 20090917
  122. PERGOLIDE MESYLATE [Suspect]
     Dosage: 1 MG, TID
     Dates: start: 20041021
  123. PERGOLIDE MESYLATE [Suspect]
     Dosage: 1 MG, UNK
     Dates: start: 20050123, end: 20060321
  124. EFFEXOR [Concomitant]
     Dosage: 75 MG, BID
     Dates: start: 20110406
  125. EFFEXOR [Concomitant]
     Dosage: 75 MG, BID
     Dates: start: 20090818
  126. EFFEXOR [Concomitant]
     Dosage: UNK UKN, UNK
     Dates: start: 20030905
  127. XANAX [Concomitant]
     Dosage: 0.5 MG, 5/ DAY
     Dates: start: 20090205
  128. XANAX [Concomitant]
     Dosage: 0.25 MG, TID
     Dates: start: 20020813
  129. XANAX [Concomitant]
     Dosage: 0.25 MG, TID
     Dates: start: 20030905
  130. ATHYMIL [Concomitant]
     Dosage: 30 MG, UNK
     Dates: start: 20090512
  131. ACETAMINOPHEN [Concomitant]
     Dosage: 1000 MG, TID
     Dates: start: 20041214
  132. ECONAZOLE NITRATE [Concomitant]
     Dosage: UNK UKN, UNK
     Dates: start: 20060918
  133. GAVISCON                                /GFR/ [Concomitant]
     Dosage: UNK UKN, UNK
     Dates: start: 20040915
  134. STALEVO 100 [Suspect]
     Dosage: 1 DF, 1 TABLET 5 TIMES PER DAY
     Route: 048
     Dates: start: 20080530
  135. MODOPAR [Suspect]
     Dosage: 125 MG, 1 TAB IN EVENING
     Dates: start: 20090927
  136. MODOPAR [Suspect]
     Dosage: 250 MG AT 1 CAPSULE 3 TIMES PER DAY, MODOPAR 125 MG AT 1 TABLET IN THE MORNING, MODOPAR 62.5
     Dates: start: 20060622
  137. PERGOLIDE MESYLATE [Suspect]
     Dosage: 0.5 MG, TID
     Dates: start: 20030905
  138. EFFEXOR [Concomitant]
     Dosage: 37.5 MG, TID
     Dates: start: 20070109
  139. EFFEXOR [Concomitant]
     Dosage: 50 MG, BID
     Dates: start: 20020219
  140. EFFEXOR [Concomitant]
     Dosage: 50 MG, BID
     Dates: start: 20020813
  141. EFFEXOR [Concomitant]
     Dosage: 75 MG, BID
     Dates: start: 20081125
  142. XANAX [Concomitant]
     Dosage: 0.5 MG, UNK
     Dates: start: 20080530
  143. XANAX [Concomitant]
     Dosage: 0.5 MG, TID
     Dates: start: 20080625
  144. XANAX [Concomitant]
     Dosage: 0.5 MG, 5 TABS/DAY
     Dates: start: 20090512
  145. XANAX [Concomitant]
     Dosage: 0.25 MG, TID
     Dates: start: 20020322
  146. XANAX [Concomitant]
     Dosage: 0.5 MG, TID
     Dates: start: 20050123
  147. LYSOPAINE [Concomitant]
     Dosage: UNK UKN, UNK
  148. ATARAX [Concomitant]
     Dosage: 25 MG, UNK
     Dates: start: 20090209
  149. ATARAX [Concomitant]
     Dosage: 5 DF, UNK
     Dates: start: 20090415
  150. INTETRIX [Concomitant]
     Dosage: 4 DF, UNK
  151. HEPTAMINOL [Concomitant]
     Dosage: 30 DRP, TID
     Dates: start: 20030408

REACTIONS (30)
  - TREMOR [None]
  - MUSCULOSKELETAL PAIN [None]
  - CORNEAL REFLEX DECREASED [None]
  - IRRITABILITY [None]
  - NECK PAIN [None]
  - MUSCLE SPASMS [None]
  - AGITATION [None]
  - DEPRESSED MOOD [None]
  - FALL [None]
  - THYMUS DISORDER [None]
  - BACK PAIN [None]
  - BALANCE DISORDER [None]
  - C-REACTIVE PROTEIN INCREASED [None]
  - PSYCHOMOTOR HYPERACTIVITY [None]
  - AKINESIA [None]
  - CHROMATURIA [None]
  - PSYCHOTIC BEHAVIOUR [None]
  - ABNORMAL BEHAVIOUR [None]
  - COMPULSIVE SHOPPING [None]
  - HYPOMANIA [None]
  - MUSCLE RIGIDITY [None]
  - SUICIDE ATTEMPT [None]
  - DEPRESSION [None]
  - SUICIDAL IDEATION [None]
  - DYSTHYMIC DISORDER [None]
  - WEIGHT INCREASED [None]
  - RED BLOOD CELL SEDIMENTATION RATE INCREASED [None]
  - AMIMIA [None]
  - NEUROSIS [None]
  - DYSPNOEA [None]
